FAERS Safety Report 21395346 (Version 1)
Quarter: 2022Q3

REPORT INFORMATION
  Report Type: Spontaneous
  Country: DE (occurrence: DE)
  Receive Date: 20220930
  Receipt Date: 20220930
  Transmission Date: 20221026
  Serious: Yes (Hospitalization)
  Sender: FDA-Public Use
  Company Number: DE-ADRED-08428-01

PATIENT
  Age: 41 Year
  Sex: Female
  Weight: 80 kg

DRUGS (5)
  1. REMICADE [Suspect]
     Active Substance: INFLIXIMAB
     Indication: Product used for unknown indication
     Dosage: NK
     Route: 041
  2. CIPROFLOXACIN [Suspect]
     Active Substance: CIPROFLOXACIN
     Indication: Product used for unknown indication
     Dosage: NK, TABLETTEN
     Route: 048
  3. METHOTREXATE [Suspect]
     Active Substance: METHOTREXATE
     Indication: Product used for unknown indication
     Dosage: 10 MG, FREITAGS 1, TABLETTEN
     Route: 048
  4. PREDNISOLONE [Suspect]
     Active Substance: PREDNISOLONE
     Indication: Product used for unknown indication
     Dosage: 5 MG, 1-0-0-0, TABLETTEN
     Route: 048
  5. AMLODIPINE BESYLATE [Concomitant]
     Active Substance: AMLODIPINE BESYLATE
     Dosage: 5 MG, 1-0-1-0, TABLETTEN
     Route: 048

REACTIONS (4)
  - Eosinophilia [Unknown]
  - Full blood count abnormal [Unknown]
  - Product prescribing error [Unknown]
  - Product monitoring error [Unknown]

NARRATIVE: CASE EVENT DATE: 20210701
